FAERS Safety Report 8963139 (Version 1)
Quarter: 2012Q4

REPORT INFORMATION
  Report Type: 
  Country: US (occurrence: US)
  Receive Date: 20121213
  Receipt Date: 20121213
  Transmission Date: 20130627
  Serious: No
  Sender: FDA-Public Use
  Company Number: US-VERTEX PHARMACEUTICALS INC.-2012-025660

PATIENT
  Sex: Male

DRUGS (7)
  1. VX-950 (TELAPREVIR) [Suspect]
     Indication: HEPATITIS C
     Dosage: 750 mg, tid
     Route: 048
  2. ALEVE [Suspect]
  3. RIBAPAK [Concomitant]
     Indication: HEPATITIS C
  4. PEGASYS [Concomitant]
     Indication: HEPATITIS C
  5. ANTIOXIDANT                        /02147801/ [Concomitant]
  6. MULTIVITAMIN                       /00097801/ [Concomitant]
  7. VITAMIN C                          /00008001/ [Concomitant]

REACTIONS (3)
  - Drug hypersensitivity [Unknown]
  - Neutropenia [Unknown]
  - Arthralgia [Unknown]
